FAERS Safety Report 6144171-8 (Version None)
Quarter: 2009Q2

REPORT INFORMATION
  Report Type: 
  Country: None (occurrence: None)
  Receive Date: 20090406
  Receipt Date: 20090325
  Transmission Date: 20091009
  Serious: Yes (Hospitalization)
  Sender: FDA-Public Use
  Company Number: US-PFIZER INC-2009187790

PATIENT
  Sex: Female
  Weight: 57 kg

DRUGS (9)
  1. SUTENT [Suspect]
     Indication: LUNG NEOPLASM MALIGNANT
     Dosage: 25 MG, 1X/DAY
     Route: 048
     Dates: start: 20090219, end: 20090317
  2. SUTENT [Suspect]
     Dosage: 12.5 MG, 1X/DAY
     Route: 048
     Dates: start: 20090219, end: 20090317
  3. LANTUS [Concomitant]
     Dosage: UNK
     Dates: start: 19730101
  4. ZOCOR [Concomitant]
     Dosage: UNK
     Dates: start: 20000315
  5. ALTACE [Concomitant]
     Dosage: UNK
     Dates: start: 20030415
  6. PRILOSEC [Concomitant]
     Dosage: UNK
     Dates: start: 20060515
  7. ACETYLSALICYLIC ACID [Concomitant]
     Dosage: UNK
     Dates: start: 20070515
  8. PHAZYME [Concomitant]
     Dosage: UNK
     Dates: start: 20090311
  9. MYLANTA [Concomitant]
     Dosage: UNK
     Dates: start: 20090311

REACTIONS (1)
  - FAILURE TO THRIVE [None]
